FAERS Safety Report 9768016 (Version 1)
Quarter: 2013Q4

REPORT INFORMATION
  Report Type: Spontaneous
  Country: US (occurrence: None)
  Receive Date: 20131217
  Receipt Date: 20131217
  Transmission Date: 20140711
  Serious: Yes (Death, Life-Threatening, Hospitalization)
  Sender: FDA-Public Use
  Company Number: 1305USA006908

PATIENT
  Age: 37 Year
  Sex: Male

DRUGS (1)
  1. INTEGRILIN (EPTIFIBATIDE) SOLUTION FOR INJECTION [Suspect]
     Dosage: UNK

REACTIONS (3)
  - Haemorrhage intracranial [None]
  - Adverse event [None]
  - Haemorrhage [None]
